FAERS Safety Report 9140308 (Version 3)
Quarter: 2013Q2

REPORT INFORMATION
  Report Type: Spontaneous
  Country: BE (occurrence: BE)
  Receive Date: 20130305
  Receipt Date: 20130523
  Transmission Date: 20140414
  Serious: Yes (Hospitalization, Other)
  Sender: FDA-Public Use
  Company Number: PHHY2013BE020500

PATIENT
  Sex: Female

DRUGS (1)
  1. GLIVEC [Suspect]
     Indication: CHRONIC MYELOID LEUKAEMIA
     Dosage: 400 MG
     Route: 048
     Dates: start: 200508, end: 20130129

REACTIONS (16)
  - Anal fissure [Recovering/Resolving]
  - Haemorrhoids [Recovering/Resolving]
  - Hiatus hernia [Unknown]
  - Melanosis coli [Unknown]
  - Weight decreased [Recovering/Resolving]
  - Diarrhoea [Recovered/Resolved]
  - Constipation [Unknown]
  - Anaemia [Recovered/Resolved]
  - Renal failure [Not Recovered/Not Resolved]
  - Malaise [Not Recovered/Not Resolved]
  - Gastrointestinal disorder [Unknown]
  - Musculoskeletal pain [Not Recovered/Not Resolved]
  - Oesophagitis [Unknown]
  - Gastritis [Unknown]
  - Duodenitis [Unknown]
  - Colitis [Unknown]
